FAERS Safety Report 9786453 (Version 3)
Quarter: 2014Q1

REPORT INFORMATION
  Report Type: Report from Study
  Country: JP (occurrence: JP)
  Receive Date: 20131227
  Receipt Date: 20140328
  Transmission Date: 20141002
  Serious: Yes (Hospitalization)
  Sender: FDA-Public Use
  Company Number: JP-MERCK-1211JPN004015

PATIENT
  Age: 81 Year
  Sex: Female
  Weight: 43.7 kg

DRUGS (16)
  1. GLACTIV [Suspect]
     Indication: TYPE 2 DIABETES MELLITUS
     Dosage: 50 MG, QD, AFTER BREAKFAST
     Route: 048
     Dates: start: 20101009, end: 20131012
  2. GLACTIV [Suspect]
     Dosage: 50 MG, QD
     Route: 048
     Dates: start: 20131018
  3. GLIMEPIRIDE [Concomitant]
     Dosage: UNK
     Route: 048
     Dates: start: 20111209, end: 20131012
  4. GLIMEPIRIDE [Concomitant]
     Dosage: UNK
     Dates: start: 20110709, end: 20110812
  5. AMLODIPINE [Concomitant]
     Dosage: UNK
     Route: 048
     Dates: start: 20110709, end: 20131012
  6. NU-LOTAN [Concomitant]
     Dosage: UNK
     Dates: end: 20131012
  7. TAKEPRON [Concomitant]
     Dosage: UNK
     Dates: start: 20101204, end: 20131012
  8. URSO [Concomitant]
     Dosage: UNK
     Dates: end: 20131012
  9. TAISHO KAMPO ICHOYAKU GRANULES [Concomitant]
     Dosage: UNK
     Dates: end: 20131012
  10. MEILAX [Concomitant]
     Dosage: UNK
     Dates: end: 20131012
  11. CEPHADOL [Concomitant]
     Dosage: UNK
     Dates: end: 20131012
  12. ADETPHOS [Concomitant]
     Dosage: UNK
     Dates: end: 20131012
  13. DEPAS [Concomitant]
     Dosage: UNK
     Dates: start: 20110819, end: 20130731
  14. SELBEX [Concomitant]
     Dosage: UNK
     Dates: end: 20111208
  15. SELBEX [Concomitant]
     Dosage: UNK
     Dates: start: 20111209, end: 20130731
  16. KAKKON-TO [Concomitant]
     Dosage: UNK
     Dates: start: 2013, end: 2013

REACTIONS (4)
  - Small intestinal obstruction [Recovered/Resolved]
  - Blood cholesterol decreased [Recovered/Resolved]
  - Biliary dilatation [Not Recovered/Not Resolved]
  - Nasopharyngitis [Recovered/Resolved]
